FAERS Safety Report 4746532-8 (Version None)
Quarter: 2005Q3

REPORT INFORMATION
  Report Type: 
  Country: None (occurrence: None)
  Receive Date: 20050815
  Receipt Date: 20050808
  Transmission Date: 20060218
  Serious: Yes (Life-Threatening, Hospitalization)
  Sender: FDA-Public Use
  Company Number: GBWYE219922NOV04

PATIENT
  Sex: Female

DRUGS (4)
  1. GEMTUZUMAB OZOGAMICIN [Suspect]
     Indication: ACUTE MYELOID LEUKAEMIA
  2. AMSACRINE [Suspect]
  3. CYTARABINE [Suspect]
     Indication: ACUTE MYELOID LEUKAEMIA
  4. ETOPOSIDE [Suspect]
     Indication: ACUTE MYELOID LEUKAEMIA

REACTIONS (2)
  - COLITIS [None]
  - INTESTINAL INFARCTION [None]
